FAERS Safety Report 4751683-8 (Version None)
Quarter: 2005Q3

REPORT INFORMATION
  Report Type: 
  Country: None (occurrence: None)
  Receive Date: 20050822
  Receipt Date: 20050809
  Transmission Date: 20060218
  Serious: Yes (Other)
  Sender: FDA-Public Use
  Company Number: CAP05000258

PATIENT
  Age: 57 Year
  Sex: Female

DRUGS (4)
  1. ETIDRONATE DISODIUM [Suspect]
     Indication: MENOPAUSE
     Dosage: 1 TABLET, DAILY,
     Dates: start: 20050330, end: 20050731
  2. OSCAL 500-D (COLECALCIFEROL, CALCIUM) [Concomitant]
  3. MULTIVITAMINS, PLAIN [Concomitant]
  4. ESTROGEL [Concomitant]

REACTIONS (12)
  - ACTIVITIES OF DAILY LIVING IMPAIRED [None]
  - BONE PAIN [None]
  - LOCAL SWELLING [None]
  - MALAISE [None]
  - MOVEMENT DISORDER [None]
  - NECK PAIN [None]
  - OEDEMA PERIPHERAL [None]
  - PAIN [None]
  - PAIN IN EXTREMITY [None]
  - PRURITUS [None]
  - SHOULDER PAIN [None]
  - URTICARIA [None]
